FAERS Safety Report 19019870 (Version 2)
Quarter: 2021Q2

REPORT INFORMATION
  Report Type: Spontaneous
  Country: FR (occurrence: FR)
  Receive Date: 20210317
  Receipt Date: 20210402
  Transmission Date: 20210717
  Serious: Yes (Life-Threatening)
  Sender: FDA-Public Use
  Company Number: FR-CHIESI USA, INC.-FR-2021CHI000062

PATIENT

DRUGS (4)
  1. DIPRIVAN [Concomitant]
     Active Substance: PROPOFOL
     Indication: SEDATION
     Dosage: 2 UNK, UNK
     Route: 065
     Dates: start: 20210220, end: 20210220
  2. KETAMINE [Concomitant]
     Active Substance: KETAMINE
     Indication: SEDATION
     Dosage: 2 UNK, UNK
     Route: 065
     Dates: start: 20210220, end: 20210220
  3. CUROSURF [Suspect]
     Active Substance: PORACTANT ALFA
     Indication: NEONATAL RESPIRATORY DISTRESS SYNDROME
     Dosage: 240 MG, SINGLE
     Route: 007
     Dates: start: 20210220, end: 20210220
  4. MEDIALIPIDE                        /01262401/ [Concomitant]
     Indication: SEDATION
     Dosage: 3 UNK, UNK
     Route: 065
     Dates: start: 20210220, end: 20210220

REACTIONS (2)
  - Bradycardia neonatal [Recovered/Resolved]
  - Neonatal hypoxia [Recovered/Resolved]

NARRATIVE: CASE EVENT DATE: 20210220
